FAERS Safety Report 8098030-4 (Version None)
Quarter: 2012Q1

REPORT INFORMATION
  Report Type: 
  Country: None (occurrence: None)
  Receive Date: 20120128
  Receipt Date: 20110726
  Transmission Date: 20120608
  Serious: No
  Sender: FDA-Public Use
  Company Number: US-ABBOTT-11P-163-0841970-00

PATIENT
  Sex: Female
  Weight: 72.64 kg

DRUGS (3)
  1. MERCAPTOPURINE [Concomitant]
     Indication: CROHN'S DISEASE
  2. VITAMIN TAB [Concomitant]
     Indication: VITAMIN SUPPLEMENTATION
  3. HUMIRA [Suspect]
     Indication: CROHN'S DISEASE
     Dates: start: 20101201

REACTIONS (1)
  - INJECTION SITE HAEMATOMA [None]
